FAERS Safety Report 9435287 (Version 1)
Quarter: 2013Q3

REPORT INFORMATION
  Report Type: Spontaneous
  Country: DE (occurrence: None)
  Receive Date: 20130730
  Receipt Date: 20130730
  Transmission Date: 20140515
  Serious: Yes (Other)
  Sender: FDA-Public Use
  Company Number: GER/GER/13/0033133

PATIENT
  Age: 1 Day
  Sex: Female
  Weight: 1.79 kg

DRUGS (4)
  1. METOPROLOL (METOPROLOL) [Suspect]
     Indication: PRODUCT USED FOR UNKNOWN INDICATION
     Route: 064
  2. NEPRESOL [Suspect]
     Indication: PRODUCT USED FOR UNKNOWN INDICATION
     Route: 064
  3. PRESINOL [Concomitant]
  4. FOLIC ACID [Concomitant]

REACTIONS (5)
  - Small for dates baby [None]
  - Premature baby [None]
  - Vomiting neonatal [None]
  - Disease recurrence [None]
  - Maternal drugs affecting foetus [None]
